FAERS Safety Report 7295676-8 (Version None)
Quarter: 2011Q1

REPORT INFORMATION
  Report Type: 
  Country: None (occurrence: None)
  Receive Date: 20110216
  Receipt Date: 20101230
  Transmission Date: 20110831
  Serious: No
  Sender: FDA-Public Use
  Company Number: US-ABBOTT-11P-163-0694592-00

PATIENT
  Sex: Female
  Weight: 65.83 kg

DRUGS (4)
  1. SIMCOR [Suspect]
     Indication: DYSLIPIDAEMIA
     Dosage: 1000/40 MG AT BEDTIME
     Route: 048
  2. SIMCOR [Suspect]
     Dosage: 500/40 MG AT BEDTIME
     Route: 048
  3. SIMCOR [Suspect]
     Dosage: 500/40 MG AT BEDTIME
     Route: 048
  4. ASPIRIN [Concomitant]
     Indication: PRODUCT USED FOR UNKNOWN INDICATION
     Route: 048

REACTIONS (4)
  - TINNITUS [None]
  - ABDOMINAL PAIN UPPER [None]
  - HEART RATE INCREASED [None]
  - NAUSEA [None]
